FAERS Safety Report 18289933 (Version 4)
Quarter: 2022Q3

REPORT INFORMATION
  Report Type: Spontaneous
  Country: DE (occurrence: DE)
  Receive Date: 20200921
  Receipt Date: 20220804
  Transmission Date: 20221027
  Serious: Yes (Hospitalization, Other)
  Sender: FDA-Public Use
  Company Number: None

PATIENT
  Sex: Male
  Weight: 98 kg

DRUGS (69)
  1. VALSARTAN [Suspect]
     Active Substance: VALSARTAN
     Indication: Blood pressure abnormal
     Dosage: 160 MG
     Route: 065
     Dates: start: 20180411
  2. VALSARTAN [Suspect]
     Active Substance: VALSARTAN
     Indication: Hypertension
     Dosage: UNK
     Route: 065
     Dates: start: 20180718, end: 20190424
  3. VALSARTAN [Suspect]
     Active Substance: VALSARTAN
     Indication: Hypertension
     Dosage: 160 MG, QD, AM
     Route: 048
     Dates: start: 20180719, end: 20181119
  4. VALSARTAN [Suspect]
     Active Substance: VALSARTAN
     Dosage: 160 MG, QD AM
     Route: 048
     Dates: start: 20181005
  5. CANDESARTAN CILEXETIL [Concomitant]
     Active Substance: CANDESARTAN CILEXETIL
     Indication: Product used for unknown indication
     Dosage: UNK
     Route: 065
  6. SPIRIVA [Concomitant]
     Active Substance: TIOTROPIUM BROMIDE MONOHYDRATE
     Indication: Chronic obstructive pulmonary disease
     Dosage: UNK
     Route: 055
  7. TIOTROPIUM BROMIDE [Concomitant]
     Active Substance: TIOTROPIUM BROMIDE
     Indication: Product used for unknown indication
     Dosage: UNK,UNK (10 MICROGRAM PLUS 3 ZONDA)
     Route: 065
  8. CELEBREX [Concomitant]
     Active Substance: CELECOXIB
     Indication: Product used for unknown indication
     Dosage: UNK
     Route: 065
  9. VENLAFAXINE HYDROCHLORIDE [Concomitant]
     Active Substance: VENLAFAXINE HYDROCHLORIDE
     Indication: Product used for unknown indication
     Dosage: UNK
     Route: 065
  10. VALSARTAN [Concomitant]
     Active Substance: VALSARTAN
     Indication: Product used for unknown indication
     Dosage: UNK
     Route: 065
  11. CAPVAL [Concomitant]
     Indication: Product used for unknown indication
     Dosage: UNK
     Route: 065
  12. ETORI [Concomitant]
     Indication: Product used for unknown indication
     Dosage: UNK
     Route: 065
  13. AMITRIPTYLINE [Concomitant]
     Active Substance: AMITRIPTYLINE
     Indication: Product used for unknown indication
     Dosage: 25 MG,UNK (AMITRPTYLIN DURA)
     Route: 065
  14. HYDROMORPHONE [Concomitant]
     Active Substance: HYDROMORPHONE
     Indication: Pain
     Dosage: UNK
     Route: 048
  15. MIRTAZAPINE [Concomitant]
     Active Substance: MIRTAZAPINE
     Indication: Product used for unknown indication
     Dosage: UNK
     Route: 065
  16. AMLODIPIN HEXAL [Concomitant]
     Indication: Hypertension
     Dosage: 5 MG, QD
     Route: 065
  17. FLUOXETINE [Concomitant]
     Active Substance: FLUOXETINE HYDROCHLORIDE
     Indication: Product used for unknown indication
     Dosage: UNK
     Route: 065
  18. CANNABIS SATIVA SUBSP. INDICA TOP [Concomitant]
     Active Substance: CANNABIS SATIVA SUBSP. INDICA TOP
     Indication: Product used for unknown indication
     Dosage: UNK,UNK (FLOWERS)
     Route: 065
  19. ACETAMINOPHEN\TRAMADOL HYDROCHLORIDE [Concomitant]
     Active Substance: ACETAMINOPHEN\TRAMADOL HYDROCHLORIDE
     Indication: Product used for unknown indication
     Dosage: UNK,UNK (37,5 / 325)
     Route: 065
  20. PANTOPRAZOLE SODIUM [Concomitant]
     Active Substance: PANTOPRAZOLE SODIUM
     Indication: Product used for unknown indication
     Dosage: UNK MG
     Route: 065
  21. SPIRIVA [Concomitant]
     Active Substance: TIOTROPIUM BROMIDE MONOHYDRATE
     Indication: Chronic obstructive pulmonary disease
     Dosage: UNK
     Route: 065
  22. HYDROMORPHONHYDROCHLORID BETA [Concomitant]
     Indication: Pain prophylaxis
     Dosage: UNK (2)
     Route: 065
  23. CANDESARTAN CILEXETIL [Concomitant]
     Active Substance: CANDESARTAN CILEXETIL
     Indication: Hypertension
     Dosage: UNK
     Route: 065
  24. GABAPENTIN [Concomitant]
     Active Substance: GABAPENTIN
     Indication: Product used for unknown indication
     Dosage: UNK
     Route: 065
  25. GABAPENTIN [Concomitant]
     Active Substance: GABAPENTIN
     Indication: Product used for unknown indication
     Dosage: UNK
     Route: 065
  26. HYDROCUTAN [Concomitant]
     Indication: Product used for unknown indication
     Dosage: UNK
     Route: 065
  27. ETORICOXIB [Concomitant]
     Active Substance: ETORICOXIB
     Indication: Pain
     Dosage: 60 MG
     Route: 048
  28. ETORICOXIB [Concomitant]
     Active Substance: ETORICOXIB
     Dosage: UNK
     Route: 048
  29. METFORMIN [Concomitant]
     Active Substance: METFORMIN HYDROCHLORIDE
     Indication: Diabetes mellitus
     Dosage: 500 MG
     Route: 048
  30. TRAMADOL AXCOUNT [Concomitant]
     Indication: Product used for unknown indication
     Dosage: UNK
     Route: 065
  31. TIOTROPIUM BROMIDE ANHYDROUS [Concomitant]
     Active Substance: TIOTROPIUM BROMIDE ANHYDROUS
     Indication: Product used for unknown indication
     Dosage: UNK (KAP NACHF?LL)
     Route: 065
  32. VERMOX [Concomitant]
     Active Substance: MEBENDAZOLE
     Indication: Product used for unknown indication
     Dosage: UNK
     Route: 065
  33. PANTOPRAZOLE SODIUM [Concomitant]
     Active Substance: PANTOPRAZOLE SODIUM
     Indication: Product used for unknown indication
     Dosage: UNK
     Route: 065
  34. MELATONIN [Concomitant]
     Active Substance: MELATONIN
     Indication: Sleep disorder
     Dosage: UNK
     Route: 065
  35. CELECOXIB ABZ [Concomitant]
     Indication: Product used for unknown indication
     Dosage: UNK
     Route: 065
  36. METFORMIN HYDROCHLORIDE [Concomitant]
     Active Substance: METFORMIN HYDROCHLORIDE
     Indication: Product used for unknown indication
     Dosage: 500 MG
     Route: 065
  37. DICLOFENAC AL [Concomitant]
     Indication: Product used for unknown indication
     Dosage: UNK (100)
     Route: 065
  38. SALBUHEXAL [Concomitant]
     Active Substance: ALBUTEROL
     Indication: Product used for unknown indication
     Dosage: UNK (200 HUB)
     Route: 065
  39. TRIMIPRAMINE MALEATE [Concomitant]
     Active Substance: TRIMIPRAMINE MALEATE
     Indication: Product used for unknown indication
     Dosage: UNK
     Route: 065
  40. TRAMADOL 1 A PHARMA [Concomitant]
     Indication: Product used for unknown indication
     Dosage: UNK,UNK (150 RET)
     Route: 065
  41. TRAMADOL 1 A PHARMA [Concomitant]
     Dosage: UNK,UNK (200 RET)
     Route: 065
  42. TRAMADOL 1 A PHARMA [Concomitant]
     Dosage: UNK (200 RET)
     Route: 065
  43. TRAMADOL 1 A PHARMA [Concomitant]
     Dosage: 500 MG
     Route: 065
  44. IBUPROFEN [Concomitant]
     Active Substance: IBUPROFEN
     Indication: Product used for unknown indication
     Dosage: UNK
     Route: 065
  45. CYMBALTA [Concomitant]
     Active Substance: DULOXETINE HYDROCHLORIDE
     Indication: Product used for unknown indication
     Dosage: UNK
     Route: 065
  46. TAMSULOSIN HYDROCHLORIDE [Concomitant]
     Active Substance: TAMSULOSIN HYDROCHLORIDE
     Indication: Product used for unknown indication
     Dosage: UNK
     Route: 065
  47. CELECOXIB 1A PHARMA [Concomitant]
     Indication: Product used for unknown indication
     Dosage: 200 MG
     Route: 065
  48. VENLAFAXIN ATID [Concomitant]
     Indication: Product used for unknown indication
     Dosage: UNK
     Route: 065
  49. DEXAMETHASONE [Concomitant]
     Active Substance: DEXAMETHASONE
     Indication: Product used for unknown indication
     Dosage: UNK
     Route: 065
  50. BETAMETHASONE DIPROPIONATE\GENTAMICIN SULFATE [Concomitant]
     Active Substance: BETAMETHASONE DIPROPIONATE\GENTAMICIN SULFATE
     Indication: Product used for unknown indication
     Dosage: UNK
     Route: 065
  51. AMITRIPTYLINE HYDROCHLORIDE [Concomitant]
     Active Substance: AMITRIPTYLINE HYDROCHLORIDE
     Indication: Pain
     Dosage: UNK
     Route: 048
  52. TRAMAGIT [Concomitant]
     Indication: Product used for unknown indication
     Dosage: UNK
     Route: 065
  53. GABAPENTIN [Concomitant]
     Active Substance: GABAPENTIN
     Indication: Product used for unknown indication
     Dosage: UNK (MICRO LAB)
     Route: 065
  54. METAMIZOLE SODIUM [Concomitant]
     Active Substance: METAMIZOLE SODIUM
     Indication: Product used for unknown indication
     Dosage: UNK
     Route: 065
  55. FOSTER [Concomitant]
     Active Substance: BECLOMETHASONE\FORMOTEROL
     Indication: Chronic obstructive pulmonary disease
     Dosage: UNK (10)
     Route: 065
  56. FOSTER [Concomitant]
     Active Substance: BECLOMETHASONE\FORMOTEROL
     Dosage: UNK (100 MCG PLUS 60 MCG, BID (AEROSOL). 1-0-1
     Route: 055
  57. FOSTER [Concomitant]
     Active Substance: BECLOMETHASONE\FORMOTEROL
     Dosage: UNK
     Route: 065
  58. RAMIPRIL [Concomitant]
     Active Substance: RAMIPRIL
     Indication: Product used for unknown indication
     Dosage: UNK
     Route: 065
  59. EXFORGE [Concomitant]
     Active Substance: AMLODIPINE BESYLATE\VALSARTAN
     Indication: Product used for unknown indication
     Dosage: UNK
     Route: 065
  60. VENLAFAXAIN [Concomitant]
     Indication: Pain
     Dosage: 75 MG
     Route: 065
  61. ETORICOXIB [Concomitant]
     Active Substance: ETORICOXIB
     Indication: Product used for unknown indication
     Dosage: UNK
     Route: 065
  62. CELECOXIB [Concomitant]
     Active Substance: CELECOXIB
     Indication: Product used for unknown indication
     Dosage: UNK
     Route: 065
  63. ALBUTEROL [Concomitant]
     Active Substance: ALBUTEROL
     Indication: Dyspnoea
     Dosage: 0.1 MG (0.1 MILLIGRAM 2 PUFF AS NEEDED (AEROSOL)
     Route: 065
  64. QUETIAPINE [Concomitant]
     Active Substance: QUETIAPINE
     Indication: Product used for unknown indication
     Route: 065
  65. METFORMIN HYDROCHLORIDE [Concomitant]
     Active Substance: METFORMIN HYDROCHLORIDE
     Indication: Metabolic disorder
     Dosage: 500 MG
     Route: 065
  66. POLYETHYLENE GLYCOLS [Concomitant]
     Active Substance: POLYETHYLENE GLYCOLS
     Indication: Constipation
     Dosage: UNK, PRN
     Route: 065
  67. BUPROPION [Concomitant]
     Active Substance: BUPROPION
     Indication: Depression
     Dosage: 150 MG, QD
     Route: 065
  68. MIRTAZAPINE [Concomitant]
     Active Substance: MIRTAZAPINE
     Indication: Depression
     Dosage: 45 MG, QD
     Route: 065
  69. DRONABINOL [Concomitant]
     Active Substance: DRONABINOL
     Indication: Pain
     Dosage: 60 ML (20 MILLILITER, TID) FORMULATION (DROPS UNSPECIFIED)
     Route: 065

REACTIONS (8)
  - Depression [Unknown]
  - Mental impairment [Unknown]
  - Anxiety disorder [Unknown]
  - Fear of disease [Unknown]
  - Recalled product [Unknown]
  - Adjustment disorder [Unknown]
  - Panic attack [Unknown]
  - Adjustment disorder with depressed mood [Unknown]
